FAERS Safety Report 7406075-X (Version None)
Quarter: 2011Q2

REPORT INFORMATION
  Report Type: 
  Country: None (occurrence: None)
  Receive Date: 20110411
  Receipt Date: 20110404
  Transmission Date: 20111010
  Serious: Yes (Hospitalization)
  Sender: FDA-Public Use
  Company Number: B0712072A

PATIENT
  Sex: Female

DRUGS (12)
  1. OMEPRAZOLE [Concomitant]
     Route: 065
  2. LACTULOSE [Concomitant]
     Route: 065
  3. INSULATARD [Concomitant]
     Route: 065
  4. SIMVASTATIN [Concomitant]
     Route: 065
  5. VITAMIN B COMPLEX CAP [Concomitant]
     Route: 065
  6. ENALAPRIL MALEATE [Concomitant]
     Route: 065
  7. UNKNOWN [Concomitant]
  8. PARACETAMOL [Concomitant]
     Route: 065
  9. METFORMIN HCL [Concomitant]
     Route: 065
  10. FORTUM [Suspect]
     Indication: DELIRIUM
     Dosage: 6G PER DAY
     Route: 042
     Dates: start: 20101222, end: 20110307
  11. UNSPECIFIED MEDICATION [Concomitant]
  12. POTASSIUM CHLORIDE [Concomitant]
     Route: 065

REACTIONS (1)
  - DELIRIUM [None]
